FAERS Safety Report 7340574-4 (Version None)
Quarter: 2011Q1

REPORT INFORMATION
  Report Type: 
  Country: None (occurrence: None)
  Receive Date: 20110309
  Receipt Date: 20110224
  Transmission Date: 20110831
  Serious: Yes (Disabling)
  Sender: FDA-Public Use
  Company Number: PHHY2011RO02583

PATIENT
  Sex: Female

DRUGS (2)
  1. FASLODEX [Concomitant]
     Dosage: 500 MG, QMO
  2. ZOMETA [Suspect]
     Indication: METASTASES TO BONE
     Dosage: 4 MG, QMO

REACTIONS (8)
  - OSTEONECROSIS OF JAW [None]
  - PAIN IN JAW [None]
  - GINGIVAL INFECTION [None]
  - SWELLING [None]
  - SOFT TISSUE INFECTION [None]
  - OSTEITIS [None]
  - BONE LESION [None]
  - OSTEOMYELITIS [None]
